FAERS Safety Report 8006216-X (Version None)
Quarter: 2011Q4

REPORT INFORMATION
  Report Type: 
  Country: None (occurrence: None)
  Receive Date: 20111226
  Receipt Date: 20111212
  Transmission Date: 20120403
  Serious: Yes (Hospitalization, Other)
  Sender: FDA-Public Use
  Company Number: US-ELI_LILLY_AND_COMPANY-US201009001287

PATIENT
  Sex: Female
  Weight: 56.7 kg

DRUGS (16)
  1. THYROID THERAPY [Concomitant]
     Indication: THYROID DISORDER
  2. SYNTHROID [Concomitant]
  3. CALCIUM CARBONATE [Concomitant]
     Dosage: 600 MG, TID
  4. FORTEO [Suspect]
     Dosage: 20 UG, QD
     Dates: start: 20100824
  5. AMLODIPINE [Concomitant]
  6. CALCIUM CARBONATE [Concomitant]
     Dosage: 1200 MG, QD
  7. ASPIRIN [Concomitant]
     Dosage: 81 MG, QD
  8. FORTEO [Suspect]
     Dosage: 20 UG, QD
     Dates: end: 20110501
  9. VITAMIN D [Concomitant]
  10. LIPITOR [Concomitant]
  11. HYDROCHLOROTHIAZIDE [Concomitant]
  12. FORTEO [Suspect]
     Dosage: 20 UG, DAILY (1/D)
  13. ATENOLOL [Concomitant]
  14. LISINOPRIL [Concomitant]
  15. FORTEO [Suspect]
     Indication: OSTEOPOROSIS
     Dosage: 20 UG, DAILY (1/D)
     Dates: start: 20100824
  16. FORTEO [Suspect]
     Dosage: 20 UG, DAILY (1/D)

REACTIONS (9)
  - ARTHRALGIA [None]
  - MEDICATION ERROR [None]
  - FATIGUE [None]
  - FEMUR FRACTURE [None]
  - FALL [None]
  - FEAR [None]
  - DRUG INEFFECTIVE [None]
  - BALANCE DISORDER [None]
  - BONE DISORDER [None]
